FAERS Safety Report 26189171 (Version 1)
Quarter: 2025Q4

REPORT INFORMATION
  Report Type: Spontaneous
  Country: US (occurrence: US)
  Receive Date: 20251223
  Receipt Date: 20251223
  Transmission Date: 20260118
  Serious: No
  Sender: Thea Pharma
  Company Number: US-THEA-2025003088

PATIENT
  Sex: Male

DRUGS (1)
  1. IYUZEH [Suspect]
     Active Substance: LATANOPROST
     Indication: Glaucoma
     Dosage: ON EACH EYE AT BEDTIME
     Route: 047
     Dates: start: 2025

REACTIONS (3)
  - Dry eye [Unknown]
  - Incorrect dose administered [Unknown]
  - Product complaint [Unknown]

NARRATIVE: CASE EVENT DATE: 20250101
